FAERS Safety Report 19733970 (Version 1)
Quarter: 2021Q3

REPORT INFORMATION
  Report Type: Spontaneous
  Country: US (occurrence: US)
  Receive Date: 20210823
  Receipt Date: 20210823
  Transmission Date: 20211014
  Serious: No
  Sender: FDA-Public Use
  Company Number: US-ALLERGAN-2036038US

PATIENT
  Age: 69 Year
  Sex: Female

DRUGS (1)
  1. ACULAR [Suspect]
     Active Substance: KETOROLAC TROMETHAMINE
     Indication: OPHTHALMIC MIGRAINE
     Dosage: 1?2 DROPS AS NEEDED
     Route: 047
     Dates: start: 2004, end: 2017

REACTIONS (4)
  - Treatment noncompliance [Unknown]
  - Expired product administered [Unknown]
  - Therapeutic response unexpected [Unknown]
  - Off label use [Unknown]
